FAERS Safety Report 13333073 (Version 1)
Quarter: 2017Q1

REPORT INFORMATION
  Report Type: Report from Study
  Country: CO (occurrence: CO)
  Receive Date: 20170313
  Receipt Date: 20170313
  Transmission Date: 20170428
  Serious: Yes (Other)
  Sender: FDA-Public Use
  Company Number: CO-EMD SERONO-8107799

PATIENT
  Age: 14 Year
  Sex: Male
  Weight: 67 kg

DRUGS (1)
  1. SAIZEN [Suspect]
     Active Substance: SOMATROPIN
     Indication: CHRONIC KIDNEY DISEASE
     Dosage: 20 ML.
     Dates: start: 20160202, end: 20160721

REACTIONS (1)
  - Scoliosis [Recovering/Resolving]

NARRATIVE: CASE EVENT DATE: 20160721
